APPROVED DRUG PRODUCT: MIGRANAL
Active Ingredient: DIHYDROERGOTAMINE MESYLATE
Strength: 0.5MG/SPRAY
Dosage Form/Route: SPRAY, METERED;NASAL
Application: N020148 | Product #001 | TE Code: AB
Applicant: BAUSCH HEALTH US LLC
Approved: Dec 8, 1997 | RLD: Yes | RS: Yes | Type: RX